FAERS Safety Report 14487706 (Version 1)
Quarter: 2018Q1

REPORT INFORMATION
  Report Type: Spontaneous
  Country: CN (occurrence: CN)
  Receive Date: 20180205
  Receipt Date: 20180205
  Transmission Date: 20180509
  Serious: Yes (Other)
  Sender: FDA-Public Use
  Company Number: PHHY2018CN017224

PATIENT
  Age: 3 Year
  Sex: Male

DRUGS (28)
  1. TOPOTECAN [Suspect]
     Active Substance: TOPOTECAN HYDROCHLORIDE
     Indication: METASTASES TO PLEURA
     Dosage: 1.2-1.5 MG/M2, CYCLIC
     Route: 041
     Dates: start: 20150611
  2. ETOPOSIDE. [Suspect]
     Active Substance: ETOPOSIDE
     Indication: METASTASES TO LUNG
  3. VINDESINE [Suspect]
     Active Substance: VINDESINE
     Indication: NECROSIS
     Dosage: 3 MG/M2, CYCLIC
     Route: 041
     Dates: start: 20150306
  4. VINDESINE [Suspect]
     Active Substance: VINDESINE
     Dosage: 3 MG/M2, CYCLIC
     Route: 041
     Dates: start: 20150508
  5. THEPRUBICINE [Suspect]
     Active Substance: PIRARUBICIN
     Indication: NECROSIS
     Dosage: 20 MG/M2, CYCLIC
     Route: 041
     Dates: start: 20150510
  6. VINDESINE [Suspect]
     Active Substance: VINDESINE
     Dosage: 3 MG/M2, CYCLIC
     Route: 041
     Dates: start: 20150611
  7. CARBOPLATIN. [Suspect]
     Active Substance: CARBOPLATIN
     Indication: METASTASES TO PLEURA
     Dosage: 150 MG/M2, CYCLIC
     Route: 041
     Dates: start: 20150306
  8. ETOPOSIDE. [Suspect]
     Active Substance: ETOPOSIDE
     Indication: METASTASES TO PLEURA
     Dosage: 100 MG/M2, CYCLIC
     Route: 041
     Dates: start: 20150331
  9. THEPRUBICINE [Suspect]
     Active Substance: PIRARUBICIN
     Indication: NEUROBLASTOMA
     Dosage: 20 MG/M2, CYCLIC
     Route: 041
     Dates: start: 20150306
  10. VINDESINE [Suspect]
     Active Substance: VINDESINE
     Indication: NEUROBLASTOMA
     Dosage: 3 MG/M2, CYCLIC
     Route: 041
     Dates: start: 2015
  11. VINDESINE [Suspect]
     Active Substance: VINDESINE
     Indication: METASTASES TO LUNG
     Dosage: 3 MG/M2, CYCLIC
     Route: 041
     Dates: start: 20150505
  12. CARBOPLATIN. [Suspect]
     Active Substance: CARBOPLATIN
     Indication: METASTASES TO LUNG
  13. ETOPOSIDE. [Suspect]
     Active Substance: ETOPOSIDE
     Indication: NEUROBLASTOMA
     Dosage: 100 MG/M2, CYCLIC
     Route: 041
     Dates: start: 20150508
  14. IFOSFAMIDE. [Suspect]
     Active Substance: IFOSFAMIDE
     Indication: METASTASES TO LUNG
  15. THEPRUBICINE [Suspect]
     Active Substance: PIRARUBICIN
     Indication: METASTASES TO PLEURA
     Dosage: 20 MG/M2, CYCLIC
     Route: 041
     Dates: start: 20150511
  16. VINDESINE [Suspect]
     Active Substance: VINDESINE
     Dosage: 3 MG/M2, CYCLIC
     Route: 041
     Dates: start: 20150612
  17. CARBOPLATIN. [Suspect]
     Active Substance: CARBOPLATIN
     Indication: NEUROBLASTOMA
     Dosage: 150 MG/M2, CYCLIC
     Route: 041
     Dates: start: 20150510
  18. GEMCITABINE [Suspect]
     Active Substance: GEMCITABINE\GEMCITABINE HYDROCHLORIDE
     Indication: METASTASES TO LUNG
  19. ETOPOSIDE. [Suspect]
     Active Substance: ETOPOSIDE
     Indication: NECROSIS
     Dosage: 100 MG/M2, CYCLIC
     Route: 041
     Dates: start: 20150614
  20. TOPOTECAN [Suspect]
     Active Substance: TOPOTECAN HYDROCHLORIDE
     Indication: NEUROBLASTOMA
     Dosage: 1.2-1.5 MG/M2, CYCLIC
     Route: 041
     Dates: start: 20150612
  21. GEMCITABINE [Suspect]
     Active Substance: GEMCITABINE\GEMCITABINE HYDROCHLORIDE
     Indication: METASTASES TO PLEURA
     Dosage: 1250 MG/M2, CYCLIC
     Route: 041
  22. GEMCITABINE [Suspect]
     Active Substance: GEMCITABINE\GEMCITABINE HYDROCHLORIDE
     Indication: NEUROBLASTOMA
  23. IFOSFAMIDE. [Suspect]
     Active Substance: IFOSFAMIDE
     Indication: NEUROBLASTOMA
     Dosage: 1200-1500 MG/M2, CYCLIC
     Route: 041
     Dates: start: 20150331
  24. IFOSFAMIDE. [Suspect]
     Active Substance: IFOSFAMIDE
     Indication: NECROSIS
     Dosage: 1200-1500 MG/M2, CYCLIC
     Route: 041
     Dates: start: 20150614
  25. TOPOTECAN [Suspect]
     Active Substance: TOPOTECAN HYDROCHLORIDE
     Indication: NECROSIS
     Dosage: 1.2-1.5 MG/M2, CYCLIC
     Route: 041
     Dates: start: 20150614
  26. CARBOPLATIN. [Suspect]
     Active Substance: CARBOPLATIN
     Indication: NECROSIS
     Dosage: 150 MG/M2, CYCLIC
     Route: 041
     Dates: start: 20150511
  27. GEMCITABINE [Suspect]
     Active Substance: GEMCITABINE\GEMCITABINE HYDROCHLORIDE
     Indication: NECROSIS
  28. VINDESINE [Suspect]
     Active Substance: VINDESINE
     Indication: METASTASES TO PLEURA
     Dosage: 3 MG/M2, CYCLIC
     Route: 041
     Dates: start: 20150329

REACTIONS (3)
  - Drug resistance [Unknown]
  - Bone marrow failure [Unknown]
  - Respiratory tract inflammation [Unknown]

NARRATIVE: CASE EVENT DATE: 2015
